FAERS Safety Report 7283345-X (Version None)
Quarter: 2011Q1

REPORT INFORMATION
  Report Type: 
  Country: None (occurrence: None)
  Receive Date: 20110204
  Receipt Date: 20110204
  Transmission Date: 20110831
  Serious: Yes (Hospitalization)
  Sender: FDA-Public Use
  Company Number: None

PATIENT
  Age: 82 Year
  Sex: Male
  Weight: 59.4212 kg

DRUGS (1)
  1. OMEPRAZOLE [Suspect]
     Dosage: 20 MG 1 A DAY BY MOUTH
     Route: 048

REACTIONS (4)
  - SKIN DISORDER [None]
  - DIARRHOEA [None]
  - RASH GENERALISED [None]
  - DIZZINESS [None]
